FAERS Safety Report 25260105 (Version 1)
Quarter: 2025Q2

REPORT INFORMATION
  Report Type: Spontaneous
  Country: US (occurrence: US)
  Receive Date: 20250501
  Receipt Date: 20250501
  Transmission Date: 20250717
  Serious: No
  Sender: ROCHE
  Company Number: US-ROCHE-10000272877

PATIENT
  Age: 72 Year
  Sex: Female

DRUGS (8)
  1. BEVACIZUMAB [Suspect]
     Active Substance: BEVACIZUMAB
     Indication: Neovascular age-related macular degeneration
     Route: 050
  2. AFLIBERCEPT [Concomitant]
     Active Substance: AFLIBERCEPT
     Route: 050
  3. AFLIBERCEPT [Concomitant]
     Active Substance: AFLIBERCEPT
     Route: 050
  4. VANCOMYCIN [Concomitant]
     Active Substance: VANCOMYCIN
     Route: 050
  5. CEFTAZIDIME [Concomitant]
     Active Substance: CEFTAZIDIME
     Route: 050
  6. DEXAMETHASONE [Concomitant]
     Active Substance: DEXAMETHASONE
     Route: 050
  7. FLUOCINOLONE [Concomitant]
     Active Substance: FLUOCINOLONE
  8. FARICIMAB [Concomitant]
     Active Substance: FARICIMAB

REACTIONS (3)
  - Off label use [Unknown]
  - No adverse event [Unknown]
  - Off label use [Unknown]
